FAERS Safety Report 8165357-7 (Version None)
Quarter: 2012Q1

REPORT INFORMATION
  Report Type: 
  Country: None (occurrence: None)
  Receive Date: 20120227
  Receipt Date: 20110517
  Transmission Date: 20120608
  Serious: No
  Sender: FDA-Public Use
  Company Number: US-MYLANLABS-2011S1010245

PATIENT
  Age: 86 Year
  Sex: Male

DRUGS (5)
  1. TOPROL-XL [Concomitant]
  2. AVAPRO [Concomitant]
  3. METFORMIN HCL [Suspect]
     Indication: TYPE 2 DIABETES MELLITUS
     Route: 048
     Dates: start: 20110421, end: 20110401
  4. PLAVIX [Concomitant]
  5. CRESTOR [Concomitant]
     Dates: start: 20100101

REACTIONS (5)
  - NERVOUSNESS [None]
  - TINNITUS [None]
  - GAIT DISTURBANCE [None]
  - COLD SWEAT [None]
  - DECREASED APPETITE [None]
